FAERS Safety Report 4748455-7 (Version None)
Quarter: 2005Q3

REPORT INFORMATION
  Report Type: 
  Country: None (occurrence: None)
  Receive Date: 20050817
  Receipt Date: 20050429
  Transmission Date: 20060218
  Serious: Yes (Other)
  Sender: FDA-Public Use
  Company Number: PHEH2005US02623

PATIENT
  Age: 66 Year
  Sex: Male

DRUGS (5)
  1. GLEEVEC [Suspect]
     Indication: CHRONIC MYELOID LEUKAEMIA
     Dosage: 400 MG, QD, ORAL
     Route: 048
     Dates: start: 20040825, end: 20050112
  2. LIPITOR/UNK/(ATORVASTATIN) [Concomitant]
  3. LOTREL [Concomitant]
  4. METOPROLOL TARTRATE [Concomitant]
  5. ASPIRIN [Concomitant]

REACTIONS (3)
  - BONE MARROW DEPRESSION [None]
  - PANCYTOPENIA [None]
  - THROMBOCYTOPENIA [None]
